FAERS Safety Report 8346806 (Version 2)
Quarter: 2013Q3

REPORT INFORMATION
  Report Type: Spontaneous
  Country: NL (occurrence: NL)
  Receive Date: 20120120
  Receipt Date: 20130802
  Transmission Date: 20140515
  Serious: Yes (Other)
  Sender: FDA-Public Use
  Company Number: NL-BRISTOL-MYERS SQUIBB COMPANY-16350852

PATIENT
  Age: 65 Year
  Sex: Female

DRUGS (2)
  1. KENACORT-A INJ 40 MG/ML [Suspect]
     Dates: start: 20090123, end: 20100907
  2. MELOXICAM [Concomitant]

REACTIONS (2)
  - Vaginal haemorrhage [Recovered/Resolved]
  - Muscle spasms [Recovered/Resolved]
